FAERS Safety Report 7122551-1 (Version None)
Quarter: 2010Q4

REPORT INFORMATION
  Report Type: 
  Country: None (occurrence: None)
  Receive Date: 20101124
  Receipt Date: 20101014
  Transmission Date: 20110411
  Serious: Yes (Other)
  Sender: FDA-Public Use
  Company Number: US-AMGEN-USASP2010000342

PATIENT

DRUGS (4)
  1. ENBREL [Suspect]
     Indication: RHEUMATOID ARTHRITIS
     Dates: start: 20100901
  2. PLAQUENIL                          /00072601/ [Concomitant]
     Dosage: 1 MG, QD
     Dates: start: 20061101
  3. SULFASALAZINE [Concomitant]
     Dosage: 1 MG, QD
     Dates: start: 20100301
  4. METHOTREXATE [Concomitant]
     Dates: start: 20100301

REACTIONS (7)
  - BACK PAIN [None]
  - BONE SWELLING [None]
  - CHEST PAIN [None]
  - DRUG INEFFECTIVE [None]
  - INJECTION SITE PAIN [None]
  - PERICARDITIS [None]
  - PLEURISY [None]
